FAERS Safety Report 4606986-4 (Version None)
Quarter: 2005Q1

REPORT INFORMATION
  Report Type: 
  Country: None (occurrence: None)
  Receive Date: 20050309
  Receipt Date: 20050224
  Transmission Date: 20050727
  Serious: Yes (Other)
  Sender: FDA-Public Use
  Company Number: 2005038782

PATIENT
  Sex: 0

DRUGS (1)
  1. GABAPENTIN [Suspect]
     Indication: NEUROPATHY PERIPHERAL

REACTIONS (5)
  - COMA [None]
  - CONVULSION [None]
  - ENCEPHALOPATHY [None]
  - NEUROTOXICITY [None]
  - RESPIRATORY FAILURE [None]
